FAERS Safety Report 5693457-X (Version None)
Quarter: 2008Q2

REPORT INFORMATION
  Report Type: 
  Country: None (occurrence: None)
  Receive Date: 20080403
  Receipt Date: 20080324
  Transmission Date: 20081010
  Serious: Yes (Hospitalization)
  Sender: FDA-Public Use
  Company Number: US-AMGEN-QUU271123

PATIENT
  Sex: Female

DRUGS (1)
  1. ENBREL [Suspect]
     Indication: PSORIASIS
     Route: 058
     Dates: start: 20060912

REACTIONS (9)
  - CONVERSION DISORDER [None]
  - FALL [None]
  - GALLBLADDER DISORDER [None]
  - LOSS OF CONSCIOUSNESS [None]
  - LYMPHOMA [None]
  - NERVE INJURY [None]
  - RIB FRACTURE [None]
  - STRESS [None]
  - WRIST FRACTURE [None]
